FAERS Safety Report 25141803 (Version 3)
Quarter: 2025Q4

REPORT INFORMATION
  Report Type: Spontaneous
  Country: US (occurrence: None)
  Receive Date: 20250331
  Receipt Date: 20251113
  Transmission Date: 20260117
  Serious: No
  Sender: ALKERMES
  Company Number: US-ALKERMES INC.-ALK-2025-000753

PATIENT
  Sex: Female

DRUGS (3)
  1. VIVITROL [Suspect]
     Active Substance: NALTREXONE
     Indication: Alcohol abuse
     Dosage: 380 MILLIGRAM, Q28D
  2. VIVITROL [Suspect]
     Active Substance: NALTREXONE
     Indication: Alcoholism
  3. VIVITROL [Suspect]
     Active Substance: NALTREXONE
     Indication: Alcohol use disorder

REACTIONS (1)
  - Drug ineffective [Unknown]
